FAERS Safety Report 7414274-6 (Version None)
Quarter: 2011Q2

REPORT INFORMATION
  Report Type: 
  Country: None (occurrence: None)
  Receive Date: 20110411
  Receipt Date: 20110411
  Transmission Date: 20111010
  Serious: Yes (Other)
  Sender: FDA-Public Use
  Company Number: None

PATIENT
  Age: 47 Year
  Weight: 48.9885 kg

DRUGS (1)
  1. LEVAQUIN [Suspect]
     Indication: PNEUMONIA
     Dosage: 500 MG ONCE DAILY PO
     Route: 048
     Dates: start: 20110103, end: 20110110

REACTIONS (10)
  - TINNITUS [None]
  - DRUG INEFFECTIVE [None]
  - PAIN IN EXTREMITY [None]
  - HYPOAESTHESIA ORAL [None]
  - VASODILATATION [None]
  - ARTHRALGIA [None]
  - EPISTAXIS [None]
  - HEADACHE [None]
  - TENDON PAIN [None]
  - HYPOGLYCAEMIA [None]
